FAERS Safety Report 5318780-X (Version None)
Quarter: 2007Q2

REPORT INFORMATION
  Report Type: 
  Country: None (occurrence: None)
  Receive Date: 20070504
  Receipt Date: 20070504
  Transmission Date: 20071010
  Serious: No
  Sender: FDA-Public Use
  Company Number: None

PATIENT
  Age: 46 Year
  Sex: Female
  Weight: 68.0396 kg

DRUGS (4)
  1. CYMBALTA [Suspect]
     Indication: DEPRESSION
     Dosage: 60 MG. TWICE DAILY PO
     Route: 048
     Dates: start: 20060103, end: 20070310
  2. CYMBALTA [Suspect]
     Indication: FATIGUE
     Dosage: 60 MG. TWICE DAILY PO
     Route: 048
     Dates: start: 20060103, end: 20070310
  3. CYMBALTA [Suspect]
     Indication: FIBROMYALGIA
     Dosage: 60 MG. TWICE DAILY PO
     Route: 048
     Dates: start: 20060103, end: 20070310
  4. CYMBALTA [Suspect]
     Indication: PAIN
     Dosage: 60 MG. TWICE DAILY PO
     Route: 048
     Dates: start: 20060103, end: 20070310

REACTIONS (21)
  - ASTHENIA [None]
  - BALANCE DISORDER [None]
  - BURNING SENSATION [None]
  - CHEST PAIN [None]
  - DIZZINESS [None]
  - DRUG INEFFECTIVE [None]
  - DRUG WITHDRAWAL SYNDROME [None]
  - DRY MOUTH [None]
  - DYSGEUSIA [None]
  - DYSPNOEA [None]
  - FEELING ABNORMAL [None]
  - HEADACHE [None]
  - HYPERHIDROSIS [None]
  - LOSS OF LIBIDO [None]
  - MALAISE [None]
  - PAIN IN EXTREMITY [None]
  - PAIN IN JAW [None]
  - PARAESTHESIA [None]
  - SCREAMING [None]
  - TOOTHACHE [None]
  - WEIGHT INCREASED [None]
